FAERS Safety Report 8322761-1 (Version None)
Quarter: 2012Q2

REPORT INFORMATION
  Report Type: 
  Country: None (occurrence: None)
  Receive Date: 20120430
  Receipt Date: 20120419
  Transmission Date: 20120825
  Serious: Yes (Other)
  Sender: FDA-Public Use
  Company Number: US-ELI_LILLY_AND_COMPANY-US201204007503

PATIENT
  Sex: Female

DRUGS (2)
  1. FORTEO [Suspect]
     Indication: OSTEOPOROSIS
     Dosage: 20 UG, QD
  2. FORTEO [Suspect]
     Dosage: 20 UG, QD

REACTIONS (10)
  - ILL-DEFINED DISORDER [None]
  - MENOPAUSE [None]
  - PELVIC FRACTURE [None]
  - SPINAL COMPRESSION FRACTURE [None]
  - BONE DENSITY DECREASED [None]
  - INTENTIONAL DRUG MISUSE [None]
  - THYROID DISORDER [None]
  - AMENORRHOEA [None]
  - CRANIOCEREBRAL INJURY [None]
  - BLOOD PARATHYROID HORMONE DECREASED [None]
